FAERS Safety Report 14679011 (Version 1)
Quarter: 2018Q1

REPORT INFORMATION
  Report Type: Spontaneous
  Country: HU (occurrence: HU)
  Receive Date: 20180326
  Receipt Date: 20180326
  Transmission Date: 20180509
  Serious: Yes (Other)
  Sender: FDA-Public Use
  Company Number: PHHY2018HU052304

PATIENT
  Age: 54 Year
  Sex: Female
  Weight: 78 kg

DRUGS (1)
  1. FEMARA [Suspect]
     Active Substance: LETROZOLE
     Indication: INVASIVE LOBULAR BREAST CARCINOMA
     Dosage: UNK
     Route: 065
     Dates: start: 20111105, end: 201412

REACTIONS (16)
  - Metastases to liver [Unknown]
  - Metastases to peritoneum [Unknown]
  - Pleural effusion [Unknown]
  - Chest pain [Unknown]
  - Diarrhoea [Unknown]
  - Metastases to bone [Unknown]
  - Abdominal distension [Unknown]
  - Lymphadenopathy [Unknown]
  - Musculoskeletal chest pain [Unknown]
  - Cholelithiasis [Unknown]
  - Hepatomegaly [Unknown]
  - Abdominal pain [Unknown]
  - Ascites [Unknown]
  - Hepatic lesion [Unknown]
  - Carbohydrate antigen 125 increased [Unknown]
  - Gamma-glutamyltransferase increased [Unknown]

NARRATIVE: CASE EVENT DATE: 201512
